FAERS Safety Report 9904436 (Version 3)
Quarter: 2017Q2

REPORT INFORMATION
  Report Type: Report from Study
  Country: US (occurrence: US)
  Receive Date: 20140218
  Receipt Date: 20170622
  Transmission Date: 20170830
  Serious: Yes (Other)
  Sender: FDA-Public Use
  Company Number: US-ROCHE-1348272

PATIENT
  Sex: Female
  Weight: 75.82 kg

DRUGS (14)
  1. NUTROPIN AQ PEN [Suspect]
     Active Substance: SOMATROPIN
     Indication: HYPOPITUITARISM
     Dosage: DEVICE WAS NUSPIN 5 (0.05 MG DOSING INCREMENTS), NEEDLES WERE NOVOFINE PEN NEEDLE 30G/8 MM
     Route: 058
     Dates: start: 20131119
  2. OXYBUTYNIN [Concomitant]
     Active Substance: OXYBUTYNIN
     Route: 065
  3. CITRUCEL [Concomitant]
     Active Substance: METHYLCELLULOSE (4000 MPA.S)
     Route: 065
  4. SYNTHROID [Concomitant]
     Active Substance: LEVOTHYROXINE SODIUM
     Route: 065
  5. FISH OIL [Concomitant]
     Active Substance: FISH OIL
     Route: 065
  6. VENLAFAXINE [Concomitant]
     Active Substance: VENLAFAXINE HYDROCHLORIDE
     Route: 065
  7. ACETAMINOPHEN. [Concomitant]
     Active Substance: ACETAMINOPHEN
     Route: 065
  8. ALENDRONATE [Concomitant]
     Active Substance: ALENDRONATE SODIUM
     Route: 065
  9. NITROSTAT [Concomitant]
     Active Substance: NITROGLYCERIN
     Dosage: AS PER NEEDED
     Route: 065
  10. COENZYME Q10 [Concomitant]
     Active Substance: UBIDECARENONE
     Dosage: REPORTED AS COQ10
     Route: 065
  11. BUSPAR [Concomitant]
     Active Substance: BUSPIRONE HYDROCHLORIDE
     Route: 065
  12. SERTRALINE [Concomitant]
     Active Substance: SERTRALINE HYDROCHLORIDE
     Route: 065
  13. ASPIRIN. [Concomitant]
     Active Substance: ASPIRIN
     Route: 065
  14. NUTROPIN AQ PEN [Suspect]
     Active Substance: SOMATROPIN
     Indication: GROWTH HORMONE DEFICIENCY
     Route: 058
     Dates: end: 20131119

REACTIONS (21)
  - Diarrhoea [Not Recovered/Not Resolved]
  - Incontinence [Not Recovered/Not Resolved]
  - Goitre [Unknown]
  - Arthritis [Unknown]
  - Insulin-like growth factor increased [Unknown]
  - Vision blurred [Not Recovered/Not Resolved]
  - Osteoarthritis [Unknown]
  - Vitamin D deficiency [Unknown]
  - Hiatus hernia [Unknown]
  - Hypoglycaemia [Not Recovered/Not Resolved]
  - Osteoarthritis [Not Recovered/Not Resolved]
  - Arthralgia [Not Recovered/Not Resolved]
  - Gait disturbance [Not Recovered/Not Resolved]
  - Polyuria [Recovered/Resolved]
  - Anxiety [Unknown]
  - Chest pain [Unknown]
  - Hepatic steatosis [Unknown]
  - Nocturia [Not Recovered/Not Resolved]
  - Hyperhidrosis [Unknown]
  - Osteoporosis [Not Recovered/Not Resolved]
  - Melanocytic naevus [Unknown]
